FAERS Safety Report 4610311-2 (Version None)
Quarter: 2005Q1

REPORT INFORMATION
  Report Type: 
  Country: None (occurrence: None)
  Receive Date: 20050314
  Receipt Date: 20050225
  Transmission Date: 20050727
  Serious: Yes (Other)
  Sender: FDA-Public Use
  Company Number: S04-USA-05599-01

PATIENT
  Age: 21 Year
  Sex: Female

DRUGS (9)
  1. LEXAPRO [Suspect]
     Indication: DEPRESSION
     Dosage: 40 MG ONCE PO
     Route: 048
     Dates: start: 20040731, end: 20040731
  2. LEXAPRO [Suspect]
     Indication: INSOMNIA
     Dosage: 40 MG ONCE PO
     Route: 048
     Dates: start: 20040731, end: 20040731
  3. LEXAPRO [Suspect]
     Indication: DEPRESSION
     Dosage: 10 MG QD PO
     Route: 048
     Dates: start: 20040702, end: 20040730
  4. LEXAPRO [Suspect]
     Indication: INSOMNIA
     Dosage: 10 MG QD PO
     Route: 048
     Dates: start: 20040702, end: 20040730
  5. GABITRIL [Suspect]
     Indication: DEPRESSION
     Dosage: 24 MG ONCE PO
     Route: 048
     Dates: start: 20040731, end: 20040731
  6. GABITRIL [Suspect]
     Indication: INSOMNIA
     Dosage: 24 MG ONCE PO
     Route: 048
     Dates: start: 20040731, end: 20040731
  7. PROZAC [Suspect]
     Indication: DEPRESSION
  8. PROZAC [Suspect]
     Indication: INSOMNIA
  9. PROZAC [Suspect]

REACTIONS (10)
  - COMA [None]
  - CONVULSION [None]
  - FOAMING AT MOUTH [None]
  - INTENTIONAL MISUSE [None]
  - LETHARGY [None]
  - LOSS OF CONSCIOUSNESS [None]
  - MOOD ALTERED [None]
  - REFUSAL OF TREATMENT BY PATIENT [None]
  - SUICIDE ATTEMPT [None]
  - TREMOR [None]
